FAERS Safety Report 10196470 (Version 2)
Quarter: 2014Q3

REPORT INFORMATION
  Report Type: Spontaneous
  Country: US (occurrence: US)
  Receive Date: 20140527
  Receipt Date: 20140917
  Transmission Date: 20150326
  Serious: No
  Sender: FDA-Public Use
  Company Number: US-009507513-1403USA012781

PATIENT
  Age: 54 Year
  Sex: Male
  Weight: 108.84 kg

DRUGS (1)
  1. MIRALAX [Suspect]
     Active Substance: POLYETHYLENE GLYCOL 3350
     Indication: COLONOSCOPY
     Dosage: 238 G, ONCE
     Route: 048
     Dates: start: 20140317, end: 20140317

REACTIONS (8)
  - Abdominal distension [Recovered/Resolved]
  - Abdominal discomfort [Unknown]
  - Unevaluable event [Unknown]
  - Overdose [Unknown]
  - Proctalgia [Unknown]
  - Abdominal pain [Recovered/Resolved]
  - Nausea [Recovered/Resolved]
  - Off label use [Unknown]

NARRATIVE: CASE EVENT DATE: 201403
